FAERS Safety Report 8687497 (Version 3)
Quarter: 2013Q4

REPORT INFORMATION
  Report Type: Spontaneous
  Country: US (occurrence: US)
  Receive Date: 20120727
  Receipt Date: 20131101
  Transmission Date: 20140711
  Serious: No
  Sender: FDA-Public Use
  Company Number: US-009507513-1207USA007219

PATIENT
  Age: 90 Year
  Sex: Female
  Weight: 45.35 kg

DRUGS (8)
  1. CLARITIN [Suspect]
     Indication: HYPERSENSITIVITY
     Dosage: 10 MG, ONCE
     Route: 048
     Dates: start: 20120704
  2. ASPIRIN [Concomitant]
     Indication: BACK PAIN
     Dosage: UNK, UNKNOWN
  3. ASPIRIN [Concomitant]
     Indication: HEADACHE
  4. ASPIRIN [Concomitant]
     Indication: ARTHRITIS
  5. ANACIN [Concomitant]
     Indication: BACK PAIN
     Dosage: UNK, UNKNOWN
  6. ANACIN [Concomitant]
     Indication: HEADACHE
  7. ANACIN [Concomitant]
     Indication: ARTHRITIS
  8. OPTIVE [Concomitant]
     Indication: DRY EYE
     Dosage: UNK, UNKNOWN
     Route: 031

REACTIONS (1)
  - Drug ineffective [Unknown]
